FAERS Safety Report 16693893 (Version 1)
Quarter: 2019Q3

REPORT INFORMATION
  Report Type: Spontaneous
  Country: FR (occurrence: FR)
  Receive Date: 20190812
  Receipt Date: 20190812
  Transmission Date: 20191004
  Serious: Yes (Life-Threatening, Hospitalization)
  Sender: FDA-Public Use
  Company Number: FR-MYLANLABS-2019M1074565

PATIENT
  Age: 12 Year
  Sex: Female
  Weight: 45.4 kg

DRUGS (6)
  1. ETOPOSIDE MYLAN 20 MG/ML, SOLUTION ? DILUER POUR PERFUSION [Suspect]
     Active Substance: ETOPOSIDE
     Indication: OVARIAN SERTOLI-LEYDIG CELL TUMOUR
     Dosage: 540 MILLIGRAM, Q21D
     Route: 041
     Dates: start: 20180226, end: 20180413
  2. CISPLATINE ACCORD [Suspect]
     Active Substance: CISPLATIN
     Indication: OVARIAN SERTOLI-LEYDIG CELL TUMOUR
     Dosage: 145 MILLIGRAM, Q21D
     Route: 041
     Dates: start: 20180226, end: 20180413
  3. IFOSFAMIDE EG [Suspect]
     Active Substance: IFOSFAMIDE
     Indication: OVARIAN SERTOLI-LEYDIG CELL TUMOUR
     Dosage: 8560 MILLIGRAM, Q21D
     Route: 041
     Dates: start: 20180226, end: 20180410
  4. IFOSFAMIDE EG [Suspect]
     Active Substance: IFOSFAMIDE
     Indication: GERM CELL CANCER
     Dosage: 1640 MILLIGRAM
     Route: 041
     Dates: start: 20171117, end: 20171119
  5. CISPLATINE ACCORD [Suspect]
     Active Substance: CISPLATIN
     Indication: GERM CELL CANCER
     Dosage: 22 MILLIGRAM
     Route: 041
     Dates: start: 20171117, end: 20171121
  6. ETOPOSIDE MYLAN 20 MG/ML, SOLUTION ? DILUER POUR PERFUSION [Suspect]
     Active Substance: ETOPOSIDE
     Indication: GERM CELL CANCER
     Dosage: 112 MILLIGRAM
     Route: 041
     Dates: start: 20171117, end: 20171121

REACTIONS (4)
  - Febrile bone marrow aplasia [Recovered/Resolved]
  - Diarrhoea [Recovered/Resolved]
  - Clostridium difficile infection [Recovered/Resolved]
  - Hypovolaemic shock [Recovered/Resolved]

NARRATIVE: CASE EVENT DATE: 20171125
